FAERS Safety Report 7466885-X (Version None)
Quarter: 2011Q2

REPORT INFORMATION
  Report Type: 
  Country: None (occurrence: None)
  Receive Date: 20110509
  Receipt Date: 20100927
  Transmission Date: 20111010
  Serious: No
  Sender: FDA-Public Use
  Company Number: US-ALEXION-A201001228

PATIENT
  Sex: Male
  Weight: 63.946 kg

DRUGS (7)
  1. HALOTESTIN [Concomitant]
     Dosage: 10 MG, QD
  2. SOLIRIS [Suspect]
     Dosage: 900 MG, Q2W
     Route: 042
     Dates: start: 20090812
  3. FERROUS SULFATE TAB [Suspect]
     Dosage: UNK
     Dates: end: 20091201
  4. FOLIC ACID [Concomitant]
     Indication: PAROXYSMAL NOCTURNAL HAEMOGLOBINURIA
     Dosage: 1 MG, UNK
  5. AVODART [Concomitant]
     Dosage: 0.5 MG, UNK
  6. SOLIRIS [Suspect]
     Indication: PAROXYSMAL NOCTURNAL HAEMOGLOBINURIA
     Dosage: 600 MG, UNK
     Route: 042
     Dates: start: 20090701
  7. HALOTESTIN [Concomitant]
     Indication: PAROXYSMAL NOCTURNAL HAEMOGLOBINURIA
     Dosage: 20 MG, QD

REACTIONS (9)
  - TRISMUS [None]
  - HAEMOGLOBINURIA [None]
  - POLLAKIURIA [None]
  - HAEMOGLOBIN DECREASED [None]
  - DEHYDRATION [None]
  - GASTROOESOPHAGEAL REFLUX DISEASE [None]
  - SERUM FERRITIN INCREASED [None]
  - TRANSFUSION [None]
  - NASOPHARYNGITIS [None]
